FAERS Safety Report 17310470 (Version 3)
Quarter: 2020Q2

REPORT INFORMATION
  Report Type: Report from Study
  Country: US (occurrence: US)
  Receive Date: 20200123
  Receipt Date: 20200413
  Transmission Date: 20200713
  Serious: Yes (Hospitalization)
  Sender: FDA-Public Use
  Company Number: US-ALEXION PHARMACEUTICALS INC.-A202000533

PATIENT
  Age: 43 Year
  Sex: Female
  Weight: 122 kg

DRUGS (25)
  1. ECULIZUMAB [Suspect]
     Active Substance: ECULIZUMAB
     Dosage: 240 ML, UNK
     Route: 042
     Dates: start: 20180823, end: 20180823
  2. DETROL [Concomitant]
     Active Substance: TOLTERODINE TARTRATE
     Indication: PROPHYLAXIS
     Dosage: 2 MG, QD
     Route: 048
     Dates: start: 20180627
  3. NAPROSYN [Concomitant]
     Active Substance: NAPROXEN
     Indication: PAIN
     Dosage: 375 MG, PRN
     Route: 048
     Dates: start: 20160331
  4. CHRONULAC [Concomitant]
     Active Substance: LACTULOSE
     Indication: CONSTIPATION
     Dosage: 10 G, QD
     Route: 048
     Dates: start: 20160510
  5. PERCOCET                           /00446701/ [Concomitant]
     Active Substance: ACETAMINOPHEN\OXYCODONE HYDROCHLORIDE\OXYCODONE TEREPHTHALATE
     Indication: PAIN
     Dosage: 325 MG, PRN
     Route: 048
     Dates: start: 20160613
  6. AMITRIPTYLLINE [Concomitant]
     Active Substance: AMITRIPTYLINE
     Indication: ANXIETY
     Dosage: 50 MG, QD
     Route: 048
     Dates: start: 20180721
  7. VITAMIN D3 [Concomitant]
     Active Substance: CHOLECALCIFEROL
     Indication: SUPPLEMENTATION THERAPY
     Dosage: 400 IU, BID
     Route: 048
  8. ECULIZUMAB [Suspect]
     Active Substance: ECULIZUMAB
     Indication: NEUROMYELITIS OPTICA SPECTRUM DISORDER
     Dosage: 240 ML, UNK
     Route: 042
     Dates: start: 20180607, end: 20180607
  9. OXYCODONE [Concomitant]
     Active Substance: OXYCODONE
     Indication: PAIN
     Dosage: 5 MG, QID
     Route: 048
  10. BACLOFEN. [Concomitant]
     Active Substance: BACLOFEN
     Indication: PAIN
     Dosage: 10 MG, TID
     Route: 030
  11. BACLOFEN. [Concomitant]
     Active Substance: BACLOFEN
     Dosage: 220 ?G, PRN
     Route: 030
  12. TOPAMAX [Concomitant]
     Active Substance: TOPIRAMATE
     Indication: PAIN
     Dosage: 100 MG, BID
     Route: 048
  13. LANTUS [Concomitant]
     Active Substance: INSULIN GLARGINE
     Indication: DIABETES MELLITUS
     Dosage: 100 ML, QD
     Route: 058
     Dates: start: 20180101
  14. NAPROXEN. [Concomitant]
     Active Substance: NAPROXEN
     Indication: PAIN IN EXTREMITY
     Dosage: 500 MG, BID
     Route: 048
     Dates: start: 20180721, end: 20180821
  15. ZOFRAN [Concomitant]
     Active Substance: ONDANSETRON HYDROCHLORIDE
     Indication: NAUSEA
     Dosage: 4 MG, PRN
     Route: 048
     Dates: start: 20160301
  16. CELLCEPT [Concomitant]
     Active Substance: MYCOPHENOLATE MOFETIL\MYCOPHENOLATE MOFETIL HYDROCHLORIDE
     Indication: NEUROMYELITIS OPTICA SPECTRUM DISORDER
     Dosage: 2500 MG, QD
     Route: 048
     Dates: start: 20160321
  17. PEPCID [Concomitant]
     Active Substance: FAMOTIDINE
     Indication: GASTROOESOPHAGEAL REFLUX DISEASE
     Dosage: 20 MG, UNK
     Route: 048
     Dates: start: 20160419
  18. ELAVIL [Concomitant]
     Active Substance: AMITRIPTYLINE HYDROCHLORIDE
     Indication: PAIN
     Dosage: 50 MG, QD
     Route: 048
     Dates: start: 20170213
  19. ZANTAC [Concomitant]
     Active Substance: RANITIDINE HYDROCHLORIDE
     Indication: GASTROOESOPHAGEAL REFLUX DISEASE
     Dosage: 300 MG, QD
     Route: 048
  20. NEURONTIN [Concomitant]
     Active Substance: GABAPENTIN
     Indication: PAIN
     Dosage: 900 MG, BID
     Route: 048
  21. SENOKOT [Concomitant]
     Active Substance: SENNOSIDES
     Indication: CONSTIPATION
     Dosage: 8.6 MG, QD
     Route: 048
     Dates: start: 20171212
  22. DULCOLAX (BISACODYL) [Concomitant]
     Active Substance: BISACODYL
     Indication: CONSTIPATION
     Dosage: 10 MG, QD
     Route: 054
     Dates: start: 20160331
  23. LASIX [Concomitant]
     Active Substance: FUROSEMIDE
     Indication: HYPERTENSION
     Dosage: 40 MG, QD
     Route: 048
     Dates: start: 20160712
  24. CYMBALTA [Concomitant]
     Active Substance: DULOXETINE HYDROCHLORIDE
     Indication: DEPRESSION
     Dosage: 60 MG, QD
     Route: 048
  25. ZANAFLEX [Concomitant]
     Active Substance: TIZANIDINE HYDROCHLORIDE
     Indication: MUSCLE SPASMS
     Dosage: 2 MG, QD
     Route: 048

REACTIONS (2)
  - Oedema peripheral [Unknown]
  - Muscle spasticity [Unknown]

NARRATIVE: CASE EVENT DATE: 20180825
